FAERS Safety Report 24064759 (Version 2)
Quarter: 2024Q3

REPORT INFORMATION
  Report Type: Other
  Country: CA (occurrence: CA)
  Receive Date: 20240709
  Receipt Date: 20240907
  Transmission Date: 20241017
  Serious: Yes (Death, Hospitalization, Other)
  Sender: GLENMARK
  Company Number: CA-GLENMARK PHARMACEUTICALS-2024GMK091974

PATIENT

DRUGS (15)
  1. GABAPENTIN [Suspect]
     Active Substance: GABAPENTIN
     Indication: Back pain
     Dosage: UNK
     Route: 065
  2. CHORIONIC GONADOTROPIN [Suspect]
     Active Substance: CHORIOGONADOTROPIN ALFA
     Indication: Paroxysmal nocturnal haemoglobinuria
     Dosage: 1080 MILLIGRAM
     Route: 058
  3. CHORIONIC GONADOTROPIN [Suspect]
     Active Substance: CHORIOGONADOTROPIN ALFA
     Indication: Paroxysmal nocturnal haemoglobinuria
     Dosage: 1080 MILLIGRAM
     Route: 058
  4. APIXABAN [Concomitant]
     Active Substance: APIXABAN
     Indication: Atrial fibrillation
     Dosage: 2.5 MILLIGRAM
     Route: 065
  5. APIXABAN [Concomitant]
     Active Substance: APIXABAN
     Dosage: 2.5 MILLIGRAM
     Route: 048
  6. ATORVASTATIN CALCIUM [Concomitant]
     Active Substance: ATORVASTATIN CALCIUM
     Indication: Dyslipidaemia
     Dosage: 10 MILLIGRAM
     Route: 065
  7. ATORVASTATIN CALCIUM [Concomitant]
     Active Substance: ATORVASTATIN CALCIUM
     Dosage: 10 MILLIGRAM
     Route: 048
  8. BISOPROLOL [Concomitant]
     Active Substance: BISOPROLOL\BISOPROLOL FUMARATE
     Indication: Product used for unknown indication
     Dosage: 5 MILLIGRAM
     Route: 065
  9. CALQUENCE [Concomitant]
     Active Substance: ACALABRUTINIB
     Indication: Product used for unknown indication
     Dosage: UNK
     Route: 065
  10. FUROSEMIDE [Concomitant]
     Active Substance: FUROSEMIDE
     Indication: Product used for unknown indication
     Dosage: 40 MILLIGRAM
     Route: 065
  11. SPIRONOLACTONE [Concomitant]
     Active Substance: SPIRONOLACTONE
     Indication: Product used for unknown indication
     Dosage: 25 MILLIGRAM
     Route: 065
  12. VITAMIN D [Concomitant]
     Active Substance: VITAMIN D NOS
     Indication: Product used for unknown indication
     Dosage: 1000 INTERNATIONAL UNIT
     Route: 065
  13. ZYLOPRIM [Concomitant]
     Active Substance: ALLOPURINOL
     Indication: Product used for unknown indication
     Dosage: 100 MILLIGRAM
     Route: 065
  14. PENICILLIN V POTASSIUM [Concomitant]
     Active Substance: PENICILLIN V POTASSIUM
     Indication: Prophylaxis
     Dosage: 300 MILLIGRAM
     Route: 065
  15. ERYTHROPOIETIN [Concomitant]
     Active Substance: ERYTHROPOIETIN
     Indication: Anaemia
     Dosage: UNK
     Route: 058

REACTIONS (25)
  - Death [Fatal]
  - Decreased appetite [Fatal]
  - Breakthrough haemolysis [Fatal]
  - Haemoglobin decreased [Fatal]
  - Infusion site erythema [Fatal]
  - Infusion site bruising [Fatal]
  - Haemolysis [Fatal]
  - Sitting disability [Fatal]
  - Crying [Fatal]
  - Unresponsive to stimuli [Fatal]
  - Dehydration [Fatal]
  - Oligodipsia [Fatal]
  - Confusional state [Fatal]
  - Purpura [Fatal]
  - Pain [Fatal]
  - Malaise [Fatal]
  - Back pain [Fatal]
  - Fatigue [Fatal]
  - Anxiety [Fatal]
  - Dyspnoea [Fatal]
  - Depression [Fatal]
  - Acute kidney injury [Fatal]
  - Somnolence [Fatal]
  - Drug ineffective [Fatal]
  - Product use in unapproved indication [Unknown]
